FAERS Safety Report 14260282 (Version 7)
Quarter: 2018Q1

REPORT INFORMATION
  Report Type: Spontaneous
  Country: FR (occurrence: FR)
  Receive Date: 20171207
  Receipt Date: 20180227
  Transmission Date: 20180508
  Serious: Yes (Death, Life-Threatening, Other)
  Sender: FDA-Public Use
  Company Number: PHHY2017FR179791

PATIENT
  Age: 25 Year
  Sex: Female
  Weight: 84 kg

DRUGS (19)
  1. ADRENALINE [Suspect]
     Active Substance: EPINEPHRINE
     Indication: ADVERSE EVENT
     Dosage: 8 MG, UNK
     Route: 065
  2. TAZOCILLINE [Concomitant]
     Active Substance: PIPERACILLIN SODIUM\TAZOBACTAM SODIUM
     Indication: PRODUCT USED FOR UNKNOWN INDICATION
     Route: 065
  3. DOBUTAMINE [Suspect]
     Active Substance: DOBUTAMINE\DOBUTAMINE HYDROCHLORIDE
     Indication: CARDIOVASCULAR DISORDER
     Dosage: 7.5 GAMMA/KG/MIN
     Route: 065
  4. HEMOSOL B0 [Suspect]
     Active Substance: CALCIUM CL\DEXTROSE\LACTIC ACID\MAGNESIUM CL\POTASSIUM CL\SODIUM BICAR\SODIUM CL
     Indication: HAEMOFILTRATION
     Dosage: 3 L, QH (72 LITERS/DAY IN TOTAL)
     Route: 042
     Dates: start: 20170715, end: 20170715
  5. METHYLPREDNISOLONE. [Concomitant]
     Active Substance: METHYLPREDNISOLONE
     Indication: PRODUCT USED FOR UNKNOWN INDICATION
     Route: 065
  6. HEPARIN [Concomitant]
     Active Substance: HEPARIN SODIUM
     Indication: PRODUCT USED FOR UNKNOWN INDICATION
     Route: 065
  7. RASBURICASE [Suspect]
     Active Substance: RASBURICASE
     Indication: PROPHYLAXIS
     Dosage: 1 DF, UNK
     Route: 065
  8. PHOXILIUM [Suspect]
     Active Substance: CALCIUM CL\MAGNESIUM CL\POTASSIUM CL\SODIUM BICAR\SODIUM CL\SODIUM PHOSPHATE,DIB
     Indication: HAEMOFILTRATION
     Route: 010
  9. SODIUM CHLORIDE. [Suspect]
     Active Substance: SODIUM CHLORIDE
     Indication: ADVERSE EVENT
  10. POTASSIUM CHLORIDE AGUETTANT [Suspect]
     Active Substance: POTASSIUM CHLORIDE\SODIUM CHLORIDE
     Indication: TUMOUR LYSIS SYNDROME
     Dosage: 5 G, CYCLIC (ADDED IN PRE DILUTION BAG, FLOW WAS 1LITER PER HOUR)
     Route: 042
     Dates: start: 20170715, end: 20170715
  11. NORADRENALINE [Suspect]
     Active Substance: NOREPINEPHRINE
     Indication: ADVERSE EVENT
     Dosage: 14 MG/H, (UPTO)
     Route: 065
  12. SODIUM BICARBONATE. [Suspect]
     Active Substance: SODIUM BICARBONATE
     Indication: HAEMOFILTRATION
  13. NORADRENALINE [Suspect]
     Active Substance: NOREPINEPHRINE
     Indication: CARDIOVASCULAR DISORDER
     Dosage: 1.5 MG/KG, (UPTO)
     Route: 065
  14. AMIODARONE [Suspect]
     Active Substance: AMIODARONE
     Indication: ADVERSE EVENT
     Dosage: 600 MG, QD
     Route: 065
  15. DOBUTAMINE [Suspect]
     Active Substance: DOBUTAMINE\DOBUTAMINE HYDROCHLORIDE
     Indication: ADVERSE EVENT
     Dosage: 1.5 MG/KG, (UPTO)
     Route: 065
  16. GLUCOSE [Suspect]
     Active Substance: DEXTROSE
     Indication: MEDICATION DILUTION
     Dosage: 250 ML, QD
     Route: 065
     Dates: start: 20170715
  17. SODIUM CHLORIDE. [Suspect]
     Active Substance: SODIUM CHLORIDE
     Indication: HAEMOFILTRATION
     Route: 065
  18. SODIUM BICARBONATE. [Suspect]
     Active Substance: SODIUM BICARBONATE
     Indication: ADVERSE EVENT
     Dosage: 8.4% MOLAR VIALS
     Route: 065
  19. INSULIN [Suspect]
     Active Substance: INSULIN NOS
     Indication: ADVERSE EVENT
     Dosage: 30 IU, QD
     Route: 065
     Dates: start: 20170715

REACTIONS (14)
  - Cardio-respiratory arrest [Fatal]
  - Cardiovascular insufficiency [Fatal]
  - Respiratory failure [Fatal]
  - Nervous system disorder [Fatal]
  - General physical health deterioration [Fatal]
  - Tumour lysis syndrome [Fatal]
  - Cerebral haematoma [Fatal]
  - Blood phosphorus increased [Fatal]
  - Cerebrovascular accident [Fatal]
  - Renal failure [Fatal]
  - Malaise [Fatal]
  - Ventricular fibrillation [Fatal]
  - Hyperkalaemia [Fatal]
  - Incorrect dose administered [Fatal]

NARRATIVE: CASE EVENT DATE: 20170715
